FAERS Safety Report 7528764-9 (Version None)
Quarter: 2011Q2

REPORT INFORMATION
  Report Type: 
  Country: None (occurrence: None)
  Receive Date: 20110607
  Receipt Date: 20101103
  Transmission Date: 20111010
  Serious: No
  Sender: FDA-Public Use
  Company Number: US-ASTRAZENECA-2010SE53699

PATIENT
  Sex: Female

DRUGS (3)
  1. PRILOSEC OTC [Suspect]
     Route: 048
     Dates: start: 20101103, end: 20101103
  2. CALCIUM CARBONATE [Concomitant]
     Dosage: UNKNOWN
  3. VITAMINS [Concomitant]
     Dosage: UNKNOWN

REACTIONS (3)
  - DISORIENTATION [None]
  - FEELING ABNORMAL [None]
  - HALLUCINATION [None]
